FAERS Safety Report 25259809 (Version 2)
Quarter: 2025Q2

REPORT INFORMATION
  Report Type: Spontaneous
  Country: US (occurrence: US)
  Receive Date: 20250501
  Receipt Date: 20250617
  Transmission Date: 20250717
  Serious: Yes (Other)
  Sender: PFIZER
  Company Number: US-PFIZER INC-202500089359

PATIENT
  Age: 45 Year
  Sex: Female

DRUGS (2)
  1. NURTEC ODT [Suspect]
     Active Substance: RIMEGEPANT SULFATE
     Indication: Migraine
     Dosage: TAKEN EVERY OTHER DAY
     Dates: start: 20250416
  2. NURTEC ODT [Suspect]
     Active Substance: RIMEGEPANT SULFATE
     Dates: start: 202504

REACTIONS (7)
  - Oral discomfort [Recovered/Resolved]
  - Glossodynia [Recovered/Resolved]
  - Oral mucosal blistering [Recovered/Resolved]
  - Oropharyngeal pain [Recovered/Resolved]
  - Dysgeusia [Recovered/Resolved]
  - Wrong technique in product usage process [Unknown]
  - Product solubility abnormal [Unknown]
